FAERS Safety Report 25504046 (Version 1)
Quarter: 2025Q2

REPORT INFORMATION
  Report Type: Spontaneous
  Country: US (occurrence: None)
  Receive Date: 20250630
  Receipt Date: 20250630
  Transmission Date: 20250716
  Serious: Yes (Death)
  Sender: FDA-CTU
  Company Number: None

PATIENT
  Age: 67 Year
  Sex: Female

DRUGS (13)
  1. SKYRIZI [Suspect]
     Active Substance: RISANKIZUMAB-RZAA
     Indication: Crohn^s disease
     Route: 058
     Dates: start: 20250327, end: 20250626
  2. GABAPENTIN [Concomitant]
     Active Substance: GABAPENTIN
  3. ALLOPURINOL 300MG TABLETS [Concomitant]
  4. CRANBERRY 450MG TABLETS [Concomitant]
  5. CYANOCOBALAMIN 1000MCG/ML INJ 1ML [Concomitant]
  6. ELIQUIS [Concomitant]
     Active Substance: APIXABAN
  7. GATTEX 5MG INJECTION KIT(1 VIAL) [Concomitant]
  8. LASIX 20MG TABLETS [Concomitant]
  9. PREDNISONE 2.5MG TABLETS [Concomitant]
  10. PRILOSEC 20MG CAPSULES [Concomitant]
  11. PROBIOTIC ADULT CAPSULES [Concomitant]
  12. TOPROL XL 50MG TABLETS [Concomitant]
  13. VITAMIN D3 1,000 UNIT TABLETS [Concomitant]

REACTIONS (1)
  - Death [None]

NARRATIVE: CASE EVENT DATE: 20250626
